FAERS Safety Report 20694002 (Version 6)
Quarter: 2024Q1

REPORT INFORMATION
  Report Type: Other
  Country: US (occurrence: None)
  Receive Date: 20220411
  Receipt Date: 20240308
  Transmission Date: 20240409
  Serious: Yes (Hospitalization)
  Sender: FDA-Public Use
  Company Number: US-ROCHE-3064361

PATIENT
  Age: 57 Year
  Sex: Female
  Weight: 68.554 kg

DRUGS (6)
  1. OCREVUS [Suspect]
     Active Substance: OCRELIZUMAB
     Indication: Relapsing-remitting multiple sclerosis
     Dosage: 600 MG EVERY 6 MONTHS?LAST INFUSION WAS ON 09/JAN/2024
     Route: 042
     Dates: start: 20211220
  2. SODIUM CHLORIDE [Concomitant]
     Active Substance: SODIUM CHLORIDE
     Route: 042
  3. MYCOPHENOLIC ACID [Concomitant]
     Active Substance: MYCOPHENOLIC ACID
     Dates: start: 201902
  4. OXYQUINOLINE [Concomitant]
     Active Substance: OXYQUINOLINE
     Dates: start: 201902
  5. MAGNESIUM [Concomitant]
     Active Substance: MAGNESIUM
     Dates: start: 2022
  6. FISH OIL [Concomitant]
     Active Substance: FISH OIL
     Dates: start: 202212

REACTIONS (12)
  - Gastroenteritis salmonella [Recovered/Resolved]
  - Urinary tract infection [Not Recovered/Not Resolved]
  - Asthenia [Unknown]
  - Fatigue [Unknown]
  - Asthenia [Unknown]
  - COVID-19 [Recovered/Resolved]
  - Mobility decreased [Not Recovered/Not Resolved]
  - Asthenia [Not Recovered/Not Resolved]
  - Scoliosis [Not Recovered/Not Resolved]
  - Burning sensation [Not Recovered/Not Resolved]
  - Influenza [Recovered/Resolved]
  - Finger deformity [Not Recovered/Not Resolved]

NARRATIVE: CASE EVENT DATE: 20220101
